FAERS Safety Report 4662747-1 (Version None)
Quarter: 2005Q2

REPORT INFORMATION
  Report Type: 
  Country: None (occurrence: None)
  Receive Date: 20050516
  Receipt Date: 20030415
  Transmission Date: 20051028
  Serious: Yes (Other)
  Sender: FDA-Public Use
  Company Number: PHEH2003US03223

PATIENT
  Age: 59 Year
  Sex: Female

DRUGS (8)
  1. ATACAND [Concomitant]
  2. GLEEVEC [Suspect]
     Indication: GASTROINTESTINAL STROMAL TUMOUR
     Dosage: 600 MG, QD
     Route: 048
  3. GLEEVEC [Suspect]
     Dosage: 500 MG, QD
     Route: 048
     Dates: start: 20020809
  4. KLOR-CON [Concomitant]
     Dosage: 10 MEQ, QD
     Route: 048
  5. NIFEREX FORTE [Concomitant]
     Dosage: 100 MG, QD
     Route: 048
  6. R-GENE [Concomitant]
  7. ARANESP [Concomitant]
     Indication: ANAEMIA
     Dosage: 0.2 MG, PRN
     Dates: start: 20021217
  8. ZOFRAN [Concomitant]
     Dosage: 8 MG, QD
     Route: 048

REACTIONS (9)
  - ANAEMIA [None]
  - BREAST CANCER IN SITU [None]
  - CONJUNCTIVAL HAEMORRHAGE [None]
  - CYANOSIS [None]
  - EYE HAEMORRHAGE [None]
  - LACRIMATION INCREASED [None]
  - PERIORBITAL OEDEMA [None]
  - RAYNAUD'S PHENOMENON [None]
  - STOMATITIS [None]
